FAERS Safety Report 10185040 (Version 1)
Quarter: 2014Q2

REPORT INFORMATION
  Report Type: Spontaneous
  Country: US (occurrence: US)
  Receive Date: 20140521
  Receipt Date: 20140521
  Transmission Date: 20141212
  Serious: Yes (Death)
  Sender: FDA-Public Use
  Company Number: US-BAYER-2014-075036

PATIENT
  Age: 48 Year
  Sex: Female

DRUGS (4)
  1. YAZ [Suspect]
  2. LISINOPRILHYDROCHLOROTHIAZIDE RATIOPHARM [Concomitant]
  3. ATROPINE [Concomitant]
  4. FERROUS SULFATE [Concomitant]

REACTIONS (1)
  - Pulmonary embolism [Fatal]
